FAERS Safety Report 20357284 (Version 1)
Quarter: 2022Q1

REPORT INFORMATION
  Report Type: Spontaneous
  Country: US (occurrence: None)
  Receive Date: 20220120
  Receipt Date: 20220120
  Transmission Date: 20220423
  Serious: No
  Sender: FDA-Public Use
  Company Number: None

PATIENT
  Age: 51 Year
  Sex: Female

DRUGS (1)
  1. TAFINLAR [Suspect]
     Active Substance: DABRAFENIB MESYLATE
     Dosage: FREQUENCY : TWICE A DAY;?
     Route: 048
     Dates: start: 202110, end: 202112

REACTIONS (5)
  - Weight decreased [None]
  - Decreased appetite [None]
  - Diarrhoea [None]
  - Dehydration [None]
  - Renal failure [None]

NARRATIVE: CASE EVENT DATE: 20211201
